FAERS Safety Report 10261879 (Version 1)
Quarter: 2014Q2

REPORT INFORMATION
  Report Type: Spontaneous
  Country: US (occurrence: US)
  Receive Date: 20140626
  Receipt Date: 20140626
  Transmission Date: 20141212
  Serious: Yes (Hospitalization)
  Sender: FDA-Public Use
  Company Number: US-BAYER-2014-094886

PATIENT
  Age: 21 Year
  Sex: Female
  Weight: 113 kg

DRUGS (5)
  1. YASMIN [Suspect]
  2. YAZ [Suspect]
  3. GLUCOPHAGE [Concomitant]
     Dosage: 1000 MG, BID
     Route: 048
  4. COZAAR [Concomitant]
     Dosage: 100 MG, DAILY
     Route: 048
  5. ADVAIR [Concomitant]

REACTIONS (4)
  - Deep vein thrombosis [Recovered/Resolved]
  - Subclavian vein thrombosis [Recovered/Resolved]
  - Axillary vein thrombosis [None]
  - Thrombophlebitis superficial [Recovered/Resolved]
